FAERS Safety Report 5182849-3 (Version None)
Quarter: 2006Q4

REPORT INFORMATION
  Report Type: 
  Country: None (occurrence: None)
  Receive Date: 20061220
  Receipt Date: 20051122
  Transmission Date: 20070319
  Serious: No
  Sender: FDA-Public Use
  Company Number: US-GLAXOSMITHKLINE-A0583210A

PATIENT
  Age: 57 Year
  Sex: Female

DRUGS (1)
  1. NICODERM CQ [Suspect]
     Dates: start: 20051114, end: 20051118

REACTIONS (4)
  - ABNORMAL DREAMS [None]
  - APPLICATION SITE RASH [None]
  - FEELING JITTERY [None]
  - RASH [None]
